FAERS Safety Report 7479145-8 (Version None)
Quarter: 2011Q2

REPORT INFORMATION
  Report Type: 
  Country: None (occurrence: None)
  Receive Date: 20110513
  Receipt Date: 20110510
  Transmission Date: 20111010
  Serious: Yes (Hospitalization)
  Sender: FDA-Public Use
  Company Number: US-BRISTOL-MYERS SQUIBB COMPANY-15640543

PATIENT
  Age: 68 Year
  Sex: Male

DRUGS (9)
  1. ONDANSETRON [Concomitant]
     Indication: NAUSEA
     Dates: start: 20110131
  2. LOPERAMIDE HCL [Concomitant]
     Indication: DIARRHOEA
     Dates: start: 20110101
  3. ACETAMINOPHEN [Concomitant]
     Indication: HEADACHE
     Dates: start: 20110206
  4. NEULASTA [Concomitant]
     Dosage: 04FEB11-04FEB11,26FEB11-26FEB11
     Dates: start: 20110204, end: 20110226
  5. TUMS [Concomitant]
     Indication: DYSPEPSIA
     Dosage: 1DF= 1TAB
     Dates: start: 20110204
  6. CISPLATIN [Suspect]
     Indication: SMALL CELL LUNG CANCER STAGE UNSPECIFIED
     Dosage: DAY 1 OF 21 DAY CYCLE
     Route: 042
     Dates: start: 20110131
  7. ETOPOSIDE [Suspect]
     Indication: SMALL CELL LUNG CANCER STAGE UNSPECIFIED
     Dosage: DAYS 1,2,3 OF 21 DAY CYCLE
     Route: 042
     Dates: start: 20110201
  8. PROCHLORPERAZINE EDISYLATE [Concomitant]
     Indication: NAUSEA
     Dates: start: 20110131
  9. LORAZEPAM [Concomitant]
     Indication: INSOMNIA
     Dates: start: 20100401

REACTIONS (4)
  - ANAEMIA [None]
  - CONFUSIONAL STATE [None]
  - FEBRILE NEUTROPENIA [None]
  - HYPOPHOSPHATAEMIA [None]
